FAERS Safety Report 17907381 (Version 1)
Quarter: 2020Q2

REPORT INFORMATION
  Report Type: Spontaneous
  Country: DE (occurrence: DE)
  Receive Date: 20200617
  Receipt Date: 20200617
  Transmission Date: 20200714
  Serious: Yes (Hospitalization)
  Sender: FDA-Public Use
  Company Number: DE-PFIZER INC-2020233789

PATIENT
  Age: 81 Year
  Sex: Female
  Weight: 90.9 kg

DRUGS (10)
  1. AMLODIPINE [Concomitant]
     Active Substance: AMLODIPINE BESYLATE
     Dosage: 5 MG, 1X/DAY, 1-0-0-0
  2. ULUNAR BREEZEHALER [Concomitant]
     Dosage: 1 DF, 1X/DAY, 1-0-0-0
  3. SERTRALINE HCL [Suspect]
     Active Substance: SERTRALINE HYDROCHLORIDE
     Dosage: 50 MG, 1X/DAY, 1-0-0-0
  4. ALLOPURINOL. [Concomitant]
     Active Substance: ALLOPURINOL
     Dosage: 300 MG, 1X/DAY, 1-0-0-0
  5. BISOPROLOL [Concomitant]
     Active Substance: BISOPROLOL
     Dosage: 7.5 MG, DAILY (5 MG, 1-0-0.5-0)
  6. ZOPICLONE [Concomitant]
     Active Substance: ZOPICLONE
     Dosage: 3.75 MG, 1X/DAY 0-0-0-1
  7. LIXIANA [Suspect]
     Active Substance: EDOXABAN TOSYLATE
     Dosage: 30 MG, 1X/DAY, 1-0-0-0
  8. PANTOPRAZOLE [Concomitant]
     Active Substance: PANTOPRAZOLE
     Dosage: 20 MG, 1X/DAY, 1-0-0-0
  9. OPIPRAMOL [Concomitant]
     Active Substance: OPIPRAMOL
     Dosage: 100 MG, 1X/DAY, 0-0-0-1
  10. TORASEMIDE [Concomitant]
     Active Substance: TORSEMIDE
     Dosage: ^20 MG, 2-1-0-0^

REACTIONS (3)
  - Pallor [Unknown]
  - Melaena [Unknown]
  - Dyspnoea [Unknown]
